FAERS Safety Report 4415568-9 (Version None)
Quarter: 2004Q2

REPORT INFORMATION
  Report Type: 
  Country: None (occurrence: None)
  Receive Date: 20040621
  Receipt Date: 20031201
  Transmission Date: 20050107
  Serious: Yes (Death)
  Sender: FDA-Public Use
  Company Number: USA-2003-0011689

PATIENT
  Age: 47 Year
  Sex: Female
  Weight: 88 kg

DRUGS (9)
  1. OXYCODONE HCL [Suspect]
  2. DIAZEPAM [Suspect]
  3. ALPRAZOLAM [Suspect]
  4. PHENOBARBITAL TAB [Suspect]
  5. CARBAMAZEPINE [Suspect]
  6. IBUPROFEN [Suspect]
  7. ACETAMINOPHEN [Suspect]
  8. CAFFEINE (CAFFEINE) [Suspect]
  9. NICOTINE [Suspect]

REACTIONS (2)
  - MULTIPLE DRUG OVERDOSE [None]
  - OVERDOSE [None]
